FAERS Safety Report 4603632-0 (Version None)
Quarter: 2005Q1

REPORT INFORMATION
  Report Type: 
  Country: None (occurrence: None)
  Receive Date: 20050310
  Receipt Date: 20050221
  Transmission Date: 20050727
  Serious: Yes (Other)
  Sender: FDA-Public Use
  Company Number: PHBS2005NL02707

PATIENT
  Age: 36 Year
  Sex: Male

DRUGS (2)
  1. RITALIN [Suspect]
     Dosage: UNK, UNK
     Route: 048
     Dates: end: 20050218
  2. RITALIN [Suspect]
     Route: 048
     Dates: start: 20050221

REACTIONS (6)
  - DISTURBANCE IN ATTENTION [None]
  - DIZZINESS [None]
  - NAUSEA [None]
  - PARAESTHESIA [None]
  - PHARMACEUTICAL PRODUCT COMPLAINT [None]
  - SOMNOLENCE [None]
